FAERS Safety Report 10036023 (Version 1)
Quarter: 2014Q1

REPORT INFORMATION
  Report Type: Spontaneous
  Country: BR (occurrence: BR)
  Receive Date: 20140325
  Receipt Date: 20140325
  Transmission Date: 20141002
  Serious: Yes (Other)
  Sender: FDA-Public Use
  Company Number: BR-009507513-1403BRA011561

PATIENT
  Sex: Female
  Weight: 73 kg

DRUGS (10)
  1. COSOPT [Suspect]
     Indication: INTRAOCULAR PRESSURE INCREASED
     Dosage: UNK, BID
     Route: 047
  2. COSOPT [Suspect]
     Indication: GLAUCOMA
  3. VYTORIN [Suspect]
     Indication: BLOOD CHOLESTEROL INCREASED
     Dosage: 10-20MG, QD
     Route: 048
     Dates: start: 2009
  4. NATRILIX [Concomitant]
     Indication: HYPERTENSION
     Dosage: 1 DF, QD
     Route: 048
     Dates: start: 2006
  5. ATACAND [Concomitant]
     Indication: HYPERTENSION
     Dosage: 1 DF, QD
     Route: 048
     Dates: start: 2006
  6. DIGEPLUS [Concomitant]
     Indication: GASTROOESOPHAGEAL REFLUX DISEASE
     Dosage: 1 DF, QPM
     Dates: start: 2013
  7. DIGEPLUS [Concomitant]
     Indication: GASTRITIS
  8. PANTOPRAZOLE [Concomitant]
     Dosage: 1 DF, QAM
     Dates: start: 2013
  9. PANTOPRAZOLE [Concomitant]
     Dosage: 1 DF, QPM
     Dates: start: 2013
  10. LACRIFILM [Concomitant]
     Indication: DRY EYE
     Dosage: UNK, TID
     Route: 047

REACTIONS (3)
  - Blindness [Not Recovered/Not Resolved]
  - Intraocular lens implant [Not Recovered/Not Resolved]
  - Eyelid operation [Not Recovered/Not Resolved]
